FAERS Safety Report 7047534-1 (Version None)
Quarter: 2010Q4

REPORT INFORMATION
  Report Type: 
  Country: None (occurrence: None)
  Receive Date: 20101015
  Receipt Date: 20101005
  Transmission Date: 20110411
  Serious: Yes (Other)
  Sender: FDA-Public Use
  Company Number: JP-PFIZER INC-2010125714

PATIENT

DRUGS (2)
  1. GABAPEN [Suspect]
     Indication: PALLIATIVE CARE
     Dosage: 300MG/DAY
     Route: 048
  2. GABAPEN [Suspect]
     Dosage: 900MG/DAY

REACTIONS (3)
  - COMMUNICATION DISORDER [None]
  - CONFUSIONAL STATE [None]
  - DELIRIUM [None]
